FAERS Safety Report 4591879-1 (Version None)
Quarter: 2005Q1

REPORT INFORMATION
  Report Type: 
  Country: None (occurrence: None)
  Receive Date: 20050225
  Receipt Date: 20050215
  Transmission Date: 20050727
  Serious: Yes (Hospitalization)
  Sender: FDA-Public Use
  Company Number: US-MERCK-0502USA02170

PATIENT
  Age: 9 Year
  Sex: Female

DRUGS (2)
  1. SINGULAIR [Suspect]
     Indication: ASTHMA
     Route: 048
     Dates: end: 20041001
  2. ADVAIR DISKUS 100/50 [Concomitant]
     Route: 065

REACTIONS (2)
  - BENIGN INTRACRANIAL HYPERTENSION [None]
  - PRESCRIBED OVERDOSE [None]
